FAERS Safety Report 21901283 (Version 2)
Quarter: 2023Q2

REPORT INFORMATION
  Report Type: Report from Study
  Country: US (occurrence: US)
  Receive Date: 20230123
  Receipt Date: 20230630
  Transmission Date: 20230722
  Serious: Yes (Hospitalization)
  Sender: FDA-Public Use
  Company Number: US-GW PHARMA-2022-US-032068

PATIENT
  Sex: Male
  Weight: 12.245 kg

DRUGS (2)
  1. EPIDIOLEX [Suspect]
     Active Substance: CANNABIDIOL
     Indication: Lennox-Gastaut syndrome
     Dosage: 1.2 MILLILITER
     Route: 048
     Dates: start: 20220920
  2. EPIDIOLEX [Suspect]
     Active Substance: CANNABIDIOL
     Dosage: 0.6 MILLILITER, BID
     Route: 048
     Dates: start: 202209

REACTIONS (2)
  - Hospitalisation [Unknown]
  - Emergency care [Unknown]
